FAERS Safety Report 4687089-X (Version None)
Quarter: 2005Q2

REPORT INFORMATION
  Report Type: 
  Country: None (occurrence: None)
  Receive Date: 20050607
  Receipt Date: 20050523
  Transmission Date: 20051028
  Serious: No
  Sender: FDA-Public Use
  Company Number: USA030740902

PATIENT
  Age: 72 Year
  Sex: Female
  Weight: 67 kg

DRUGS (10)
  1. FORTEO [Suspect]
     Indication: OSTEOPOROSIS
     Dosage: 20 UG DAY
     Dates: start: 20030531
  2. ASPIRIN [Concomitant]
  3. METOPROLOL [Concomitant]
  4. LISINOPRIL [Concomitant]
  5. OGEN [Concomitant]
  6. SYNTHROID [Concomitant]
  7. CALCIUM PLUS D [Concomitant]
  8. MULTI-VITAMIN [Concomitant]
  9. TRIAMTERENE [Concomitant]
  10. TYLENOL [Concomitant]

REACTIONS (11)
  - ASTHENIA [None]
  - BACK PAIN [None]
  - BONE PAIN [None]
  - FEELING ABNORMAL [None]
  - HYPERSENSITIVITY [None]
  - MALAISE [None]
  - MUSCLE SPASMS [None]
  - NAUSEA [None]
  - PAIN IN EXTREMITY [None]
  - PHARMACEUTICAL PRODUCT COMPLAINT [None]
  - TREMOR [None]
